FAERS Safety Report 4646063-X (Version None)
Quarter: 2005Q2

REPORT INFORMATION
  Report Type: 
  Country: None (occurrence: None)
  Receive Date: 20050427
  Receipt Date: 20050404
  Transmission Date: 20051028
  Serious: Yes (Other)
  Sender: FDA-Public Use
  Company Number: US-ABBOTT-05P-163-0297518-00

PATIENT
  Sex: Female

DRUGS (2)
  1. SEVOFLURANE [Suspect]
     Indication: INDUCTION OF ANAESTHESIA
     Dosage: NOT REPORTED
     Route: 055
     Dates: start: 20050301, end: 20050301
  2. LORSARTAN POTASSIUM [Interacting]
     Indication: DRUG USE FOR UNKNOWN INDICATION
     Dosage: NOT REPORTED

REACTIONS (3)
  - DRUG INTERACTION [None]
  - HYPOTENSION [None]
  - PULMONARY OEDEMA [None]
